FAERS Safety Report 15869653 (Version 2)
Quarter: 2019Q1

REPORT INFORMATION
  Report Type: Spontaneous
  Country: BR (occurrence: BR)
  Receive Date: 20190125
  Receipt Date: 20190128
  Transmission Date: 20190417
  Serious: Yes (Life-Threatening, Hospitalization)
  Sender: FDA-Public Use
  Company Number: BR-FRESENIUS KABI-FK201900763

PATIENT
  Age: 60 Year
  Sex: Male

DRUGS (11)
  1. AMINOVEN 15% [Suspect]
     Active Substance: AMINO ACIDS
     Indication: NUTRITIONAL SUPPLEMENTATION
     Dosage: 1000 ML, BR: 166,5 ML
     Route: 042
     Dates: start: 20190113, end: 20190113
  2. CALCIUM GLUCONATE 10% [Suspect]
     Active Substance: CALCIUM GLUCONATE
     Indication: NUTRITIONAL SUPPLEMENTATION
     Dosage: 10ML X100 BR: 6 ML
     Route: 042
     Dates: start: 20190113, end: 20190113
  3. LIPOVENOES MCT 20% [Suspect]
     Active Substance: EGG PHOSPHOLIPIDS\GLYCERIN\MEDIUM-CHAIN TRIGLYCERIDES\SOYBEAN OIL
     Indication: NUTRITIONAL SUPPLEMENTATION
     Dosage: 500 ML BR: 150 ML
     Route: 042
     Dates: start: 20190113, end: 20190113
  4. METAMIZOLE SODIUM [Concomitant]
     Active Substance: METAMIZOLE SODIUM
     Indication: PRODUCT USED FOR UNKNOWN INDICATION
     Dosage: UNKNOWN
     Route: 042
  5. METOCLOPRAMIDE. [Concomitant]
     Active Substance: METOCLOPRAMIDE
     Indication: PRODUCT USED FOR UNKNOWN INDICATION
     Dosage: 5MG, TID
     Route: 042
  6. ENOXAPARIN [Concomitant]
     Active Substance: ENOXAPARIN
     Indication: PRODUCT USED FOR UNKNOWN INDICATION
     Dosage: 40MG,QD
     Route: 058
  7. GLUCOSE 50% [Suspect]
     Active Substance: DEXTROSE
     Indication: NUTRITIONAL SUPPLEMENTATION
     Dosage: 150 ML
     Route: 042
     Dates: start: 20190113, end: 20190113
  8. ONDANSETRON [Concomitant]
     Active Substance: ONDANSETRON
     Indication: PRODUCT USED FOR UNKNOWN INDICATION
     Dosage: 6MG,TID
     Route: 042
  9. RANITIDINE. [Concomitant]
     Active Substance: RANITIDINE
     Indication: PRODUCT USED FOR UNKNOWN INDICATION
     Dosage: 25MG, TID
     Route: 042
  10. WATER FOR INJECTIONS [Suspect]
     Active Substance: WATER
     Indication: NUTRITIONAL SUPPLEMENTATION
     Dosage: 1.000 ML KP: 482,9 ML
     Route: 042
     Dates: start: 20190113, end: 20190113
  11. GLYCOPHOS [Suspect]
     Active Substance: SODIUM GLYCEROPHOSPHATE ANHYDROUS
     Indication: NUTRITIONAL SUPPLEMENTATION
     Dosage: 1 X 20 ML BRAZIL: 10,1 ML
     Route: 042
     Dates: start: 20190113, end: 20190113

REACTIONS (5)
  - Cyanosis [Recovered/Resolved]
  - Pyrexia [Recovered/Resolved]
  - Hypoxia [Recovered/Resolved]
  - Bacteraemia [Recovered/Resolved]
  - Tremor [Recovered/Resolved]

NARRATIVE: CASE EVENT DATE: 20190113
